FAERS Safety Report 4825055-1 (Version None)
Quarter: 2005Q4

REPORT INFORMATION
  Report Type: 
  Country: None (occurrence: None)
  Receive Date: 20051108
  Receipt Date: 20051026
  Transmission Date: 20060501
  Serious: Yes (Other)
  Sender: FDA-Public Use
  Company Number: 218993

PATIENT
  Age: 43 Week
  Sex: Male

DRUGS (2)
  1. MABTHERA (RITUXIMAB) CONC FOR SOLUTION FOR INFUSION [Suspect]
     Indication: CASTLEMAN'S DISEASE
     Dosage: SEE IMAGE
  2. ETOPOSIDE [Concomitant]

REACTIONS (6)
  - CASTLEMAN'S DISEASE [None]
  - CONDITION AGGRAVATED [None]
  - DISEASE RECURRENCE [None]
  - DRUG INEFFECTIVE [None]
  - HEPATOSPLENOMEGALY [None]
  - KAPOSI'S SARCOMA [None]
